FAERS Safety Report 4507831-8 (Version None)
Quarter: 2004Q4

REPORT INFORMATION
  Report Type: 
  Country: None (occurrence: None)
  Receive Date: 20041123
  Receipt Date: 20041118
  Transmission Date: 20050328
  Serious: Yes (Death)
  Sender: FDA-Public Use
  Company Number: PHBS2004GR15620

PATIENT
  Age: 80 Year
  Sex: Male

DRUGS (4)
  1. LESCOL XL [Suspect]
     Route: 048
  2. SINTROM [Concomitant]
  3. LASIX [Concomitant]
  4. ALDACTONE [Concomitant]

REACTIONS (1)
  - CARDIAC FAILURE [None]
